FAERS Safety Report 9700647 (Version 1)
Quarter: 2013Q4

REPORT INFORMATION
  Report Type: Spontaneous
  Country: GB (occurrence: None)
  Receive Date: 20131119
  Receipt Date: 20131119
  Transmission Date: 20140711
  Serious: Yes (Other)
  Sender: FDA-Public Use
  Company Number: GB-DEXPHARM-20130933

PATIENT
  Sex: Male

DRUGS (1)
  1. OMEPRAZOLE [Suspect]
     Indication: DIVERTICULITIS
     Dosage: 10 MG 2 IN 1 D
     Route: 048

REACTIONS (4)
  - Diverticulitis [None]
  - Product colour issue [None]
  - Product quality issue [None]
  - Product substitution issue [None]
